FAERS Safety Report 4391989-8 (Version None)
Quarter: 2004Q3

REPORT INFORMATION
  Report Type: 
  Country: None (occurrence: None)
  Receive Date: 20040701
  Receipt Date: 20040629
  Transmission Date: 20050211
  Serious: Yes (Other)
  Sender: FDA-Public Use
  Company Number: US-SHR-03-013672

PATIENT
  Age: 39 Year
  Sex: Female
  Weight: 45.4 kg

DRUGS (2)
  1. BETAPACE [Suspect]
     Indication: ARRHYTHMIA
     Dosage: 160 MG, 2X/DAY, ORAL
     Route: 048
     Dates: start: 19930601
  2. NORVASC [Concomitant]

REACTIONS (9)
  - ASTHENIA [None]
  - BLISTER [None]
  - CONDITION AGGRAVATED [None]
  - DYSPNOEA [None]
  - EXPOSURE TO COMMUNICABLE DISEASE [None]
  - FOOD ALLERGY [None]
  - MULTIPLE ALLERGIES [None]
  - MUSCLE ATROPHY [None]
  - WEIGHT DECREASED [None]
